FAERS Safety Report 18059165 (Version 3)
Quarter: 2023Q1

REPORT INFORMATION
  Report Type: Spontaneous
  Country: US (occurrence: US)
  Receive Date: 20200723
  Receipt Date: 20230202
  Transmission Date: 20230418
  Serious: Yes (Other)
  Sender: FDA-Public Use
  Company Number: US-SUN PHARMACEUTICAL INDUSTRIES LTD-2020R1-254647

PATIENT
  Age: 22 Year
  Sex: Female

DRUGS (1)
  1. CLONAZEPAM [Suspect]
     Active Substance: CLONAZEPAM
     Indication: Loss of consciousness
     Dosage: UNK
     Route: 065

REACTIONS (5)
  - Dextrocardia [Unknown]
  - Loss of consciousness [Unknown]
  - Overdose [Unknown]
  - Electrocardiogram abnormal [Unknown]
  - Somnolence [Unknown]
